FAERS Safety Report 9474112 (Version 3)
Quarter: 2013Q4

REPORT INFORMATION
  Report Type: Report from Study
  Country: JP (occurrence: JP)
  Receive Date: 20130823
  Receipt Date: 20131001
  Transmission Date: 20140711
  Serious: Yes (Hospitalization)
  Sender: FDA-Public Use
  Company Number: JP-JNJFOC-20130708187

PATIENT
  Age: 72 Year
  Sex: Male
  Weight: 60 kg

DRUGS (4)
  1. XARELTO [Suspect]
     Indication: CEREBROVASCULAR ACCIDENT PROPHYLAXIS
     Route: 048
     Dates: start: 20130620, end: 20130625
  2. XARELTO [Suspect]
     Indication: ATRIAL FIBRILLATION
     Route: 048
     Dates: start: 20130620, end: 20130625
  3. ADALAT CR [Concomitant]
     Route: 048
     Dates: end: 20130625
  4. DISOPYRAMIDE PHOSPHATE [Concomitant]
     Route: 048
     Dates: end: 20130719

REACTIONS (3)
  - Large intestinal haemorrhage [Recovered/Resolved]
  - Tachycardia [Recovered/Resolved]
  - Hepatic function abnormal [Recovered/Resolved]
